FAERS Safety Report 4535671-2 (Version None)
Quarter: 2004Q4

REPORT INFORMATION
  Report Type: 
  Country: None (occurrence: None)
  Receive Date: 20041223
  Receipt Date: 20031110
  Transmission Date: 20050328
  Serious: Yes (Other)
  Sender: FDA-Public Use
  Company Number: US-GLAXOSMITHKLINE-A0439040A

PATIENT
  Age: 45 Year
  Sex: Male

DRUGS (2)
  1. FLONASE [Suspect]
     Indication: PROPHYLAXIS
     Dosage: 2SPR PER DAY
     Route: 045
     Dates: end: 20031101
  2. ALLEGRA [Concomitant]

REACTIONS (2)
  - CATARACT [None]
  - VISUAL DISTURBANCE [None]
